FAERS Safety Report 6045275-0 (Version None)
Quarter: 2009Q1

REPORT INFORMATION
  Report Type: 
  Country: None (occurrence: None)
  Receive Date: 20090121
  Receipt Date: 20090109
  Transmission Date: 20090719
  Serious: Yes (Other)
  Sender: FDA-Public Use
  Company Number: PHHY2009BR01069

PATIENT
  Sex: Male
  Weight: 60 kg

DRUGS (2)
  1. FORASEQ [Suspect]
     Indication: EMPHYSEMA
     Dosage: BID,IN THE MORNING AND AT THE NIGHT
     Dates: start: 20060101
  2. TEOLONG [Concomitant]
     Indication: EMPHYSEMA
     Dosage: BID, IN THE MORNING AND AT NIGHT
     Route: 048
     Dates: start: 20060101

REACTIONS (3)
  - MALIGNANT NEOPLASM OF EYE [None]
  - OESOPHAGEAL CARCINOMA [None]
  - WEIGHT DECREASED [None]
